FAERS Safety Report 4631133-2 (Version None)
Quarter: 2005Q2

REPORT INFORMATION
  Report Type: 
  Country: None (occurrence: None)
  Receive Date: 20050407
  Receipt Date: 20050407
  Transmission Date: 20051028
  Serious: Yes (Life-Threatening, Hospitalization)
  Sender: FDA-Public Use
  Company Number: None

PATIENT
  Age: 56 Year
  Sex: Male
  Weight: 64.8644 kg

DRUGS (2)
  1. DOXIL [Suspect]
     Indication: RENAL CANCER METASTATIC
     Dosage: 72 MG   EVERY 4 WEEKS  INTRAVENOU
     Route: 042
     Dates: start: 20050216, end: 20050330
  2. TOPOTECAN [Suspect]
     Indication: RENAL CANCER METASTATIC
     Dosage: 2.6      EVERY WK X3    INTRAVENOU
     Route: 042
     Dates: start: 20050216, end: 20050330

REACTIONS (3)
  - NEUTROPENIA [None]
  - SEPSIS [None]
  - THROMBOCYTOPENIA [None]
